FAERS Safety Report 15486764 (Version 4)
Quarter: 2019Q1

REPORT INFORMATION
  Report Type: Report from Study
  Country: None (occurrence: US)
  Receive Date: 20181011
  Receipt Date: 20190305
  Transmission Date: 20190417
  Serious: Yes (Other)
  Sender: FDA-Public Use
  Company Number: US-ABBVIE-18K-163-2515328-00

PATIENT
  Age: 54 Year
  Sex: Female

DRUGS (1)
  1. HUMIRA [Suspect]
     Active Substance: ADALIMUMAB
     Indication: RHEUMATOID ARTHRITIS
     Route: 058

REACTIONS (9)
  - Pneumonia [Unknown]
  - Feeling of body temperature change [Unknown]
  - Arthralgia [Unknown]
  - Anaemia [Unknown]
  - Hiatus hernia [Unknown]
  - Hernia [Unknown]
  - Abdominal pain upper [Unknown]
  - Back pain [Unknown]
  - Liver injury [Unknown]
